FAERS Safety Report 4284814-7 (Version None)
Quarter: 2004Q1

REPORT INFORMATION
  Report Type: 
  Country: None (occurrence: None)
  Receive Date: 20040204
  Receipt Date: 20030312
  Transmission Date: 20041129
  Serious: No
  Sender: FDA-Public Use
  Company Number: US-BRISTOL-MYERS SQUIBB COMPANY-12209078

PATIENT
  Sex: Female

DRUGS (6)
  1. AZACTAM [Suspect]
  2. DIFLUCAN [Concomitant]
  3. PROTONIX [Concomitant]
  4. FOSAMAX [Concomitant]
  5. COUMADIN [Concomitant]
  6. MULTI-VITAMIN [Concomitant]

REACTIONS (1)
  - EAR PAIN [None]
